FAERS Safety Report 8838492 (Version 1)
Quarter: 2012Q4

REPORT INFORMATION
  Report Type: 
  Country: JP (occurrence: JP)
  Receive Date: 20121012
  Receipt Date: 20121012
  Transmission Date: 20130627
  Serious: Yes (Other)
  Sender: FDA-Public Use
  Company Number: JP-B.I. PHARMACEUTICALS,INC./RIDGEFIELD-2012-BP-25213YA

PATIENT
  Age: 43 Year
  Sex: Male
  Weight: 98 kg

DRUGS (9)
  1. TAMSULOSINA [Suspect]
     Indication: BENIGN PROSTATIC HYPERPLASIA
     Dosage: 0.2 mg
     Route: 048
     Dates: start: 20111116
  2. CONIEL (BENIDIPINE HYDROCHLORIDE) TABLET [Concomitant]
     Dates: start: 20111116, end: 20120606
  3. NORVASC (AMLODIPINE BESILATE) ORODISPERSIBLE CR TABLET [Concomitant]
  4. ZETIA (EZETIMIBE) TABLET [Concomitant]
     Dates: start: 20111116
  5. LIOVEL (ALOGLIPTIN BENZOATE, PIOGLITAZONE HYDROCHLORIDE) TABLET [Concomitant]
     Dates: start: 20111116
  6. AMARYL (GLIMEPIRIDE) TABLET [Concomitant]
     Dates: start: 20111116, end: 20120328
  7. GLYCYRON /00466401/ (DL-METHIONINE, GLYCINE, GLYCYRRHIZIC ACID) TABLET [Concomitant]
     Dates: start: 20111116
  8. ALOSITOL (ALLOPURINOL) TABLET [Concomitant]
     Dates: start: 20111116, end: 20120328
  9. URINORM (BENZBROMARONE) TABLET [Concomitant]
     Dates: start: 20111116, end: 20111128

REACTIONS (1)
  - Blood creatine phosphokinase increased [Not Recovered/Not Resolved]
